FAERS Safety Report 14347126 (Version 2)
Quarter: 2018Q1

REPORT INFORMATION
  Report Type: Spontaneous
  Country: US (occurrence: US)
  Receive Date: 20180103
  Receipt Date: 20180213
  Transmission Date: 20180509
  Serious: Yes (Other)
  Sender: FDA-Public Use
  Company Number: US-IMPAX LABORATORIES, INC-2017-IPXL-03826

PATIENT
  Age: 76 Year
  Sex: Male

DRUGS (4)
  1. ADRENACLICK [Suspect]
     Active Substance: EPINEPHRINE
     Indication: PRODUCT USED FOR UNKNOWN INDICATION
     Dosage: 1:200,000, UNK
     Route: 065
  2. ADRENACLICK [Suspect]
     Active Substance: EPINEPHRINE
     Dosage: 8 ?G, UNK
     Route: 065
  3. ADRENACLICK [Suspect]
     Active Substance: EPINEPHRINE
     Dosage: INTERMITTENT BOLUSES, UNK
     Route: 050
  4. LIDOCAINE. [Concomitant]
     Active Substance: LIDOCAINE
     Indication: PRODUCT USED FOR UNKNOWN INDICATION
     Dosage: 1.5 %, UNK
     Route: 065

REACTIONS (10)
  - Supraventricular extrasystoles [Recovered/Resolved]
  - Muscular weakness [Recovered/Resolved]
  - Ventricular extrasystoles [Recovered/Resolved]
  - Anal incontinence [Recovered/Resolved]
  - Sensory loss [Recovered/Resolved]
  - Nausea [Recovered/Resolved]
  - Anaesthetic complication [Unknown]
  - Bradycardia [Recovered/Resolved]
  - Paraesthesia [Recovered/Resolved]
  - Dizziness [Recovered/Resolved]
